FAERS Safety Report 18917332 (Version 4)
Quarter: 2021Q2

REPORT INFORMATION
  Report Type: Report from Study
  Country: US (occurrence: US)
  Receive Date: 20210219
  Receipt Date: 20210526
  Transmission Date: 20210717
  Serious: Yes (Other)
  Sender: FDA-Public Use
  Company Number: US-UCBSA-2021006663

PATIENT
  Sex: Male

DRUGS (2)
  1. KEPPRA XR [Suspect]
     Active Substance: LEVETIRACETAM
     Indication: SEIZURE
     Dosage: 1500MG MORNING AND 2000MG AT NIGHT , 2X/DAY (BID)
     Route: 048
     Dates: start: 2013
  2. LACOSAMIDE. [Suspect]
     Active Substance: LACOSAMIDE
     Indication: SEIZURE
     Dosage: 200 MILLIGRAM, 2X/DAY (BID)
     Route: 048
     Dates: start: 2013

REACTIONS (5)
  - Head injury [Not Recovered/Not Resolved]
  - Coma [Not Recovered/Not Resolved]
  - Slow speech [Not Recovered/Not Resolved]
  - Product use issue [Unknown]
  - Cerebrovascular accident [Recovered/Resolved]
